FAERS Safety Report 17433600 (Version 2)
Quarter: 2020Q1

REPORT INFORMATION
  Report Type: Spontaneous
  Country: FR (occurrence: FR)
  Receive Date: 20200219
  Receipt Date: 20200312
  Transmission Date: 20200409
  Serious: Yes (Other)
  Sender: FDA-Public Use
  Company Number: FR-GLAXOSMITHKLINE-FR2020027688

PATIENT
  Age: 64 Year
  Sex: Male

DRUGS (2)
  1. NUX VOMICA [Suspect]
     Active Substance: STRYCHNOS NUX-VOMICA SEED
     Indication: PRODUCT USED FOR UNKNOWN INDICATION
     Dosage: UNK
     Route: 048
     Dates: start: 2017, end: 2017
  2. NICORETTE [Suspect]
     Active Substance: NICOTINE
     Indication: DEPENDENCE
     Dosage: 30 TO 40 GUMS OF 2ML PER DAY
     Route: 048
     Dates: start: 1999, end: 20200205

REACTIONS (3)
  - Cholestasis [Recovering/Resolving]
  - Hepatocellular injury [Recovered/Resolved]
  - Liver injury [Recovering/Resolving]

NARRATIVE: CASE EVENT DATE: 20191019
